FAERS Safety Report 6424229-6 (Version None)
Quarter: 2009Q4

REPORT INFORMATION
  Report Type: 
  Country: None (occurrence: None)
  Receive Date: 20091102
  Receipt Date: 20091021
  Transmission Date: 20100525
  Serious: Yes (Hospitalization)
  Sender: FDA-Public Use
  Company Number: US-PFIZER INC-2009287142

PATIENT
  Sex: Female

DRUGS (3)
  1. LYRICA [Suspect]
     Dosage: 300 MG, 2X/DAY
  2. NEURONTIN [Suspect]
     Dosage: 1800MG
  3. METHADONE [Suspect]

REACTIONS (2)
  - HALLUCINATION [None]
  - RESPIRATORY DEPRESSION [None]
